FAERS Safety Report 19083640 (Version 1)
Quarter: 2021Q2

REPORT INFORMATION
  Report Type: Report from Study
  Country: NL (occurrence: NL)
  Receive Date: 20210401
  Receipt Date: 20210401
  Transmission Date: 20210717
  Serious: Yes (Hospitalization, Other)
  Sender: FDA-Public Use
  Company Number: NL-JNJFOC-20190715752

PATIENT

DRUGS (10)
  1. MESALAMINE. [Concomitant]
     Active Substance: MESALAMINE
  2. ADALIMUMAB [Suspect]
     Active Substance: ADALIMUMAB
     Indication: INFLAMMATORY BOWEL DISEASE
  3. REMICADE [Suspect]
     Active Substance: INFLIXIMAB
     Indication: COLITIS ULCERATIVE
  4. ADALIMUMAB [Suspect]
     Active Substance: ADALIMUMAB
     Indication: CROHN^S DISEASE
     Route: 065
  5. METHOTREXATE. [Concomitant]
     Active Substance: METHOTREXATE
  6. REMICADE [Suspect]
     Active Substance: INFLIXIMAB
     Indication: INFLAMMATORY BOWEL DISEASE
  7. PREDNISONE. [Concomitant]
     Active Substance: PREDNISONE
  8. BUDESONIDE. [Concomitant]
     Active Substance: BUDESONIDE
  9. REMICADE [Suspect]
     Active Substance: INFLIXIMAB
     Indication: CROHN^S DISEASE
     Route: 042
  10. ADALIMUMAB [Suspect]
     Active Substance: ADALIMUMAB
     Indication: COLITIS ULCERATIVE

REACTIONS (18)
  - Salivary gland neoplasm [Unknown]
  - Urosepsis [Unknown]
  - Pneumocystis jirovecii pneumonia [Unknown]
  - Hypersensitivity [Unknown]
  - Drug ineffective [Unknown]
  - Cholecystitis infective [Unknown]
  - Diverticulitis [Unknown]
  - Infection [Unknown]
  - Adverse event [Unknown]
  - Cerebral infarction [Unknown]
  - Drug specific antibody [Unknown]
  - Squamous cell carcinoma [Unknown]
  - Exposure during pregnancy [Unknown]
  - Breast cancer [Unknown]
  - Bacteraemia [Unknown]
  - Neoplasm malignant [Unknown]
  - Anaphylactic reaction [Unknown]
  - Pneumonia [Unknown]
